FAERS Safety Report 14383105 (Version 3)
Quarter: 2018Q1

REPORT INFORMATION
  Report Type: Spontaneous
  Country: DE (occurrence: DE)
  Receive Date: 20180115
  Receipt Date: 20180126
  Transmission Date: 20180509
  Serious: Yes (Death)
  Sender: FDA-Public Use
  Company Number: DE-ROCHE-2051580

PATIENT
  Age: 40 Year
  Sex: Male

DRUGS (2)
  1. TYSABRI [Suspect]
     Active Substance: NATALIZUMAB
     Indication: MULTIPLE SCLEROSIS
     Dosage: DATE OF MOST RECENT DOSE PRIOR TO EVENT 08/APR/2014
     Route: 065
     Dates: start: 20090417
  2. RITUXIMAB. [Suspect]
     Active Substance: RITUXIMAB
     Indication: MULTIPLE SCLEROSIS
     Route: 042
     Dates: start: 20160706, end: 20170518

REACTIONS (1)
  - Death [Fatal]

NARRATIVE: CASE EVENT DATE: 20170825
